FAERS Safety Report 19035856 (Version 1)
Quarter: 2021Q1

REPORT INFORMATION
  Report Type: Spontaneous
  Country: GB (occurrence: GB)
  Receive Date: 20210321
  Receipt Date: 20210321
  Transmission Date: 20210420
  Serious: Yes (Other)
  Sender: FDA-Public Use
  Company Number: GB-TEVA-2021-GB-1890479

PATIENT
  Age: 46 Year
  Sex: Male

DRUGS (11)
  1. EPREX [Suspect]
     Active Substance: ERYTHROPOIETIN
     Dosage: 10000 INTERNATIONAL UNIT, QWK
     Route: 042
     Dates: start: 20191031, end: 20191126
  2. EPREX [Suspect]
     Active Substance: ERYTHROPOIETIN
     Indication: NEPHROGENIC ANAEMIA
     Dosage: 30000 INTERNATIONAL UNIT, QWK
     Route: 042
     Dates: start: 20200723, end: 20200727
  3. EPREX [Suspect]
     Active Substance: ERYTHROPOIETIN
     Dosage: 40000 INTERNATIONAL UNIT, QWK
     Route: 058
     Dates: start: 20200727
  4. EPREX [Suspect]
     Active Substance: ERYTHROPOIETIN
     Dosage: 14000 INTERNATIONAL UNIT, QWK
     Route: 042
     Dates: start: 20191126, end: 20191129
  5. EPREX [Suspect]
     Active Substance: ERYTHROPOIETIN
     Dosage: 5000 INTERNATIONAL UNIT, QWK
     Route: 042
     Dates: start: 20190717, end: 20191031
  6. EPREX [Suspect]
     Active Substance: ERYTHROPOIETIN
     Dosage: 26000 INTERNATIONAL UNIT, QWK
     Route: 042
     Dates: start: 20200615, end: 20200723
  7. ENVARSUS XR [Suspect]
     Active Substance: TACROLIMUS
     Indication: PROPHYLAXIS AGAINST TRANSPLANT REJECTION
  8. EPREX [Suspect]
     Active Substance: ERYTHROPOIETIN
     Dosage: 26000 INTERNATIONAL UNIT, QWK
     Route: 058
     Dates: start: 20191227, end: 20200615
  9. MYCOPHENOLIC ACID. [Suspect]
     Active Substance: MYCOPHENOLIC ACID
     Indication: PRODUCT USED FOR UNKNOWN INDICATION
     Route: 065
  10. EPREX [Suspect]
     Active Substance: ERYTHROPOIETIN
     Dosage: 20000 INTERNATIONAL UNIT, QWK
     Route: 042
     Dates: start: 20191129, end: 20191227
  11. ALFACALCIDOL [Concomitant]
     Active Substance: ALFACALCIDOL
     Indication: HYPERPARATHYROIDISM

REACTIONS (3)
  - Drug ineffective [Unknown]
  - Anti-erythropoietin antibody negative [Recovered/Resolved]
  - Off label use [Unknown]

NARRATIVE: CASE EVENT DATE: 20200806
